FAERS Safety Report 4675792-7 (Version None)
Quarter: 2005Q2

REPORT INFORMATION
  Report Type: 
  Country: None (occurrence: None)
  Receive Date: 20050527
  Receipt Date: 20040722
  Transmission Date: 20051028
  Serious: Yes (Other)
  Sender: FDA-Public Use
  Company Number: PHBS2004BE09817

PATIENT
  Age: 70 Year
  Sex: Female

DRUGS (13)
  1. VINCRISTINE + ADRIAMYCIN + DEXAMETHASONE [Concomitant]
     Route: 065
     Dates: start: 20020313, end: 20020626
  2. VINORELBINE TARTRATE [Concomitant]
     Route: 065
     Dates: start: 20020718, end: 20020814
  3. EPIRUBICIN [Concomitant]
     Route: 065
     Dates: start: 20020718, end: 20020814
  4. VELCADE [Concomitant]
     Route: 065
     Dates: start: 20040802
  5. AREDIA [Suspect]
     Dosage: 90 MG, QMO
     Route: 042
     Dates: start: 20020301, end: 20021003
  6. BONE MARROW TRANSPLANT [Concomitant]
     Indication: STEM CELL TRANSPLANT
     Dosage: UNK, UNK
     Dates: start: 20021112, end: 20021112
  7. BONE MARROW TRANSPLANT [Concomitant]
     Dates: start: 20031214, end: 20031214
  8. BONE MARROW TRANSPLANT [Concomitant]
     Dosage: STEM CELL COLLECTION
     Dates: start: 20020919, end: 20020919
  9. ZOMETA [Suspect]
     Indication: MULTIPLE MYELOMA
     Dosage: 4 MG, QMO
     Route: 042
     Dates: start: 20021025, end: 20040719
  10. VEPESID [Concomitant]
     Dosage: UNK, UNK
     Route: 065
     Dates: start: 20020911
  11. MELPHALAN [Concomitant]
     Dosage: UNK, UNK
     Route: 065
     Dates: start: 20021112, end: 20021112
  12. MELPHALAN [Concomitant]
     Route: 065
     Dates: start: 20031214, end: 20031214
  13. THALIDOMIDE [Concomitant]
     Dosage: UNK, UNK
     Route: 065
     Dates: start: 20040119, end: 20040719

REACTIONS (11)
  - ABSCESS JAW [None]
  - ANAEMIA [None]
  - ASEPTIC NECROSIS BONE [None]
  - DISEASE RECURRENCE [None]
  - HYPERBARIC OXYGEN THERAPY [None]
  - OSTEOMYELITIS [None]
  - PAIN IN JAW [None]
  - PNEUMONIA ASPERGILLUS [None]
  - SELECTIVE IGA IMMUNODEFICIENCY [None]
  - THROMBOCYTOPENIA [None]
  - TOOTH EXTRACTION [None]
